FAERS Safety Report 9478990 (Version 2)
Quarter: 2013Q4

REPORT INFORMATION
  Report Type: Spontaneous
  Country: AU (occurrence: None)
  Receive Date: 20130822
  Receipt Date: 20131108
  Transmission Date: 20140711
  Serious: Yes (Hospitalization)
  Sender: FDA-Public Use
  Company Number: 2013MPI00482

PATIENT
  Sex: 0

DRUGS (4)
  1. BRENTUXIMAB VEDOTIN (BRENTUXIMAB VEDOTIN) INJECTION [Suspect]
     Indication: HODGKIN^S DISEASE
     Route: 042
     Dates: start: 20130726, end: 20130726
  2. DOXORUBICIN [Suspect]
     Indication: HODGKIN^S DISEASE
     Route: 042
  3. VINBLASTINE [Suspect]
     Indication: HODGKIN^S DISEASE
  4. DACARBAZINE [Suspect]
     Indication: HODGKIN^S DISEASE

REACTIONS (9)
  - Hyperglycaemia [None]
  - Dehydration [None]
  - Neutrophil count decreased [None]
  - White blood cell count decreased [None]
  - Glomerular filtration rate decreased [None]
  - Hypochromic anaemia [None]
  - Blood sodium decreased [None]
  - Febrile neutropenia [None]
  - Hyperglycaemia [None]
